FAERS Safety Report 8014904-4 (Version None)
Quarter: 2011Q4

REPORT INFORMATION
  Report Type: 
  Country: None (occurrence: None)
  Receive Date: 20111229
  Receipt Date: 20111219
  Transmission Date: 20120403
  Serious: Yes (Other)
  Sender: FDA-Public Use
  Company Number: FI-ABBOTT-11P-055-0884468-00

PATIENT
  Age: 69 Year
  Sex: Male

DRUGS (2)
  1. HUMIRA [Suspect]
     Indication: RHEUMATOID ARTHRITIS
     Dates: start: 20100801, end: 20110601
  2. HUMIRA [Suspect]
     Dates: start: 20110101

REACTIONS (3)
  - RASH GENERALISED [None]
  - INTERVERTEBRAL DISC PROTRUSION [None]
  - RASH [None]
